FAERS Safety Report 9293236 (Version 1)
Quarter: 2013Q2

REPORT INFORMATION
  Report Type: Spontaneous
  Country: NL (occurrence: NL)
  Receive Date: 20130516
  Receipt Date: 20130516
  Transmission Date: 20140414
  Serious: Yes (Hospitalization, Other)
  Sender: FDA-Public Use
  Company Number: NL-PFIZER INC-2013149268

PATIENT
  Age: 73 Year
  Sex: Male

DRUGS (10)
  1. PANTOPRAZOLE [Suspect]
     Indication: HELICOBACTER INFECTION
     Dosage: 1 DF, 2X/DAY (40 MG)
     Route: 048
     Dates: start: 201211, end: 20121124
  2. CLARITHROMYCIN [Suspect]
     Indication: HELICOBACTER INFECTION
     Dosage: 1 DF, 2X/DAY (1000MG)
     Route: 048
     Dates: start: 201211, end: 20121124
  3. AMOXICILLIN [Suspect]
     Indication: HELICOBACTER INFECTION
     Dosage: 1 DF, 2X/DAY (500MG)
     Route: 048
     Dates: start: 201211, end: 20121124
  4. PANTOZOL [Concomitant]
     Dosage: 40 MG, 1X/DAY
     Route: 048
  5. FUROSEMIDE [Concomitant]
     Dosage: 20 MG, 1X/DAY
     Route: 048
  6. FUROSEMIDE [Concomitant]
     Dosage: 20 MG, 2X/DAY
     Route: 048
  7. ACENOCOUMAROL [Concomitant]
     Indication: THROMBOSIS
     Dosage: 1 MG, UNK
     Route: 048
  8. METOPROLOL [Concomitant]
     Dosage: 50 MG, 1X/DAY
     Route: 048
  9. METOPROLOL [Concomitant]
     Dosage: 25 MG, 3X/DAY
     Route: 048
  10. ALFACALCIDOL [Concomitant]
     Dosage: 0.25 UG, 1X/DAY (MCG)
     Route: 048

REACTIONS (2)
  - Respiratory failure [Unknown]
  - Tubulointerstitial nephritis [Unknown]
